FAERS Safety Report 9304988 (Version 1)
Quarter: 2013Q2

REPORT INFORMATION
  Report Type: Spontaneous
  Country: HR (occurrence: None)
  Receive Date: 20130520
  Receipt Date: 20130520
  Transmission Date: 20140414
  Serious: Yes (Other)
  Sender: FDA-Public Use
  Company Number: HR-1198352

PATIENT
  Age: 69 Year
  Sex: Female
  Weight: 75 kg

DRUGS (2)
  1. TRAVATAN [Suspect]
     Indication: GLAUCOMA
     Dosage: 1 GTT BID
     Route: 047
     Dates: start: 20130228, end: 20130320
  2. MAXIDEX [Suspect]
     Indication: GLAUCOMA
     Route: 047
     Dates: start: 20130228

REACTIONS (2)
  - Feeling hot [None]
  - Abnormal sensation in eye [None]
